FAERS Safety Report 11927312 (Version 1)
Quarter: 2016Q1

REPORT INFORMATION
  Report Type: Report from Study
  Country: IN (occurrence: IN)
  Receive Date: 20160119
  Receipt Date: 20160119
  Transmission Date: 20160526
  Serious: Yes (Other)
  Sender: FDA-Public Use
  Company Number: IN-BRISTOL-MYERS SQUIBB COMPANY-15119241

PATIENT
  Sex: Female

DRUGS (2)
  1. LORAZEPAM. [Concomitant]
     Active Substance: LORAZEPAM
     Indication: PRODUCT USED FOR UNKNOWN INDICATION
     Dosage: UNK
     Route: 065
     Dates: start: 20091021
  2. ARIPIPRAZOLE. [Suspect]
     Active Substance: ARIPIPRAZOLE
     Indication: PRODUCT USED FOR UNKNOWN INDICATION
     Dosage: 400 MG, UNK
     Route: 050
     Dates: start: 20091228

REACTIONS (4)
  - Exposure via body fluid [Unknown]
  - Pregnancy on contraceptive [Unknown]
  - Abortion induced [Unknown]
  - Twin pregnancy [Recovered/Resolved]

NARRATIVE: CASE EVENT DATE: 2010
